FAERS Safety Report 6504522-9 (Version None)
Quarter: 2009Q4

REPORT INFORMATION
  Report Type: 
  Country: None (occurrence: None)
  Receive Date: 20091217
  Receipt Date: 20091211
  Transmission Date: 20100525
  Serious: Yes (Life-Threatening)
  Sender: FDA-Public Use
  Company Number: US-GILEAD-2009-0025718

PATIENT
  Sex: Male
  Weight: 90.2 kg

DRUGS (6)
  1. TRUVADA [Suspect]
     Indication: HIV INFECTION
     Route: 048
     Dates: start: 20090821, end: 20091124
  2. DARUNAVIR [Concomitant]
     Indication: HIV INFECTION
     Route: 048
     Dates: start: 20090821, end: 20091124
  3. NORVIR [Concomitant]
     Indication: HIV INFECTION
     Route: 048
     Dates: start: 20090821, end: 20091124
  4. BACTRIM DS [Concomitant]
     Indication: PROPHYLAXIS
     Dates: start: 20090601
  5. ZITHROMAX [Concomitant]
     Indication: PROPHYLAXIS
     Dates: start: 20090601
  6. DIFLUCAN [Concomitant]
     Indication: PROPHYLAXIS
     Dates: start: 20090601

REACTIONS (1)
  - NEUTROPHIL COUNT DECREASED [None]
